FAERS Safety Report 4933850-3 (Version None)
Quarter: 2006Q1

REPORT INFORMATION
  Report Type: 
  Country: None (occurrence: None)
  Receive Date: 20060306
  Receipt Date: 20020730
  Transmission Date: 20060701
  Serious: Yes (Hospitalization)
  Sender: FDA-Public Use
  Company Number: US-MERCK-0208USA00326

PATIENT
  Age: 65 Year
  Sex: Female
  Weight: 116 kg

DRUGS (4)
  1. VIOXX [Suspect]
     Indication: RHEUMATOID ARTHRITIS
     Route: 048
     Dates: start: 20000503, end: 20010628
  2. CELEBREX [Concomitant]
     Route: 065
  3. GLYBURIDE [Concomitant]
     Route: 065
  4. GLUCOPHAGE [Concomitant]
     Route: 065

REACTIONS (1)
  - CEREBROVASCULAR ACCIDENT [None]
